FAERS Safety Report 17688893 (Version 1)
Quarter: 2020Q2

REPORT INFORMATION
  Report Type: Spontaneous
  Country: NL (occurrence: NL)
  Receive Date: 20200421
  Receipt Date: 20200421
  Transmission Date: 20200714
  Serious: Yes (Other)
  Sender: FDA-Public Use
  Company Number: NL-MYLANLABS-2020M1039383

PATIENT
  Sex: Male
  Weight: 87 kg

DRUGS (2)
  1. CETIRIZIN MYLAN 10 MG FILM-COATED TABLETS [Suspect]
     Active Substance: CETIRIZINE HYDROCHLORIDE
     Indication: SEASONAL ALLERGY
     Dosage: 1 X PER DAG 1 STUK
     Dates: start: 20200317, end: 20200321
  2. AVAMYS [Concomitant]
     Active Substance: FLUTICASONE FUROATE
     Dosage: NEUSSPROOI 27,5MICROGRAM/DOSIS

REACTIONS (2)
  - Diarrhoea haemorrhagic [Unknown]
  - Diarrhoea [Unknown]
